FAERS Safety Report 16174966 (Version 1)
Quarter: 2019Q2

REPORT INFORMATION
  Report Type: Spontaneous
  Country: US (occurrence: US)
  Receive Date: 20190409
  Receipt Date: 20190409
  Transmission Date: 20190711
  Serious: No
  Sender: FDA-Public Use
  Company Number: US-PERRIGO-19US002012

PATIENT
  Age: 60 Year
  Sex: Male
  Weight: 97.51 kg

DRUGS (3)
  1. ACETAMINOPHEN. [Suspect]
     Active Substance: ACETAMINOPHEN
     Dosage: TOTAL OF 5200 MG IN 24 HOURS
     Route: 048
     Dates: start: 20190211, end: 20190211
  2. ACETAMINOPHEN. [Suspect]
     Active Substance: ACETAMINOPHEN
     Dosage: 650 MG, EVERY 6 HOURS
     Route: 048
     Dates: start: 20190212
  3. ACETAMINOPHEN. [Suspect]
     Active Substance: ACETAMINOPHEN
     Indication: MUSCULOSKELETAL PAIN
     Dosage: 650 MG, EVERY 6 HOURS
     Route: 048
     Dates: start: 20190115, end: 20190210

REACTIONS (4)
  - Incorrect dose administered [Recovered/Resolved]
  - Incorrect product administration duration [Not Recovered/Not Resolved]
  - Inappropriate schedule of product administration [Unknown]
  - Wrong product administered [Recovered/Resolved]

NARRATIVE: CASE EVENT DATE: 20190115
